FAERS Safety Report 20585874 (Version 1)
Quarter: 2022Q1

REPORT INFORMATION
  Report Type: Report from Study
  Country: US (occurrence: US)
  Receive Date: 20220312
  Receipt Date: 20220312
  Transmission Date: 20220424
  Serious: Yes (Other)
  Sender: FDA-Public Use
  Company Number: US-ABBVIE-22K-163-4296784-00

PATIENT
  Sex: Male

DRUGS (1)
  1. HUMIRA [Suspect]
     Active Substance: ADALIMUMAB
     Indication: Rheumatoid arthritis
     Route: 058

REACTIONS (5)
  - Blindness [Unknown]
  - Iritis [Recovering/Resolving]
  - Eye disorder [Unknown]
  - Impaired work ability [Unknown]
  - Drug specific antibody present [Unknown]
